FAERS Safety Report 18078231 (Version 5)
Quarter: 2021Q3

REPORT INFORMATION
  Report Type: Report from Study
  Country: US (occurrence: US)
  Receive Date: 20200728
  Receipt Date: 20210923
  Transmission Date: 20211014
  Serious: Yes (Hospitalization)
  Sender: FDA-Public Use
  Company Number: NVSC2020US205536

PATIENT
  Age: 70 Year
  Sex: Female

DRUGS (3)
  1. ENTRESTO [Suspect]
     Active Substance: SACUBITRIL\VALSARTAN
     Dosage: 1 DF (49.51MG)
     Route: 065
  2. ENTRESTO [Suspect]
     Active Substance: SACUBITRIL\VALSARTAN
     Dosage: 1 DF, UNKNOWN (97/103 1G/ 2ML)
     Route: 048
     Dates: start: 20200619
  3. ENTRESTO [Suspect]
     Active Substance: SACUBITRIL\VALSARTAN
     Indication: CARDIAC FAILURE CONGESTIVE
     Dosage: UNK
     Route: 065

REACTIONS (13)
  - Infection [Unknown]
  - Gastric ulcer [Unknown]
  - Injury corneal [Unknown]
  - Blood pressure abnormal [Unknown]
  - Arthropod bite [Unknown]
  - Eye pain [Unknown]
  - Nodule [Unknown]
  - Staphylococcal infection [Unknown]
  - Foreign body sensation in eyes [Unknown]
  - Thrombosis [Recovered/Resolved]
  - Cardiac dysfunction [Unknown]
  - Parotid duct obstruction [Unknown]
  - Vision blurred [Unknown]

NARRATIVE: CASE EVENT DATE: 20191202
